FAERS Safety Report 11813123 (Version 1)
Quarter: 2015Q4

REPORT INFORMATION
  Report Type: Report from Study
  Country: FR (occurrence: None)
  Receive Date: 20151207
  Receipt Date: 20151207
  Transmission Date: 20160305
  Serious: Yes (Hospitalization)
  Sender: FDA-Public Use
  Company Number: RAP-0217-2014

PATIENT
  Age: 30 Year
  Sex: Female
  Weight: 43.99 kg

DRUGS (1)
  1. CYSTEAMINE (CYSTEAMINE BITARTRATE) DELAYED-RELEASED CAPSULE [Suspect]
     Active Substance: CYSTEAMINE BITARTRATE
     Indication: CYSTINOSIS
     Route: 048
     Dates: start: 20130917

REACTIONS (1)
  - Arteriovenous fistula site complication [None]

NARRATIVE: CASE EVENT DATE: 20140925
